FAERS Safety Report 7352522-1 (Version None)
Quarter: 2011Q1

REPORT INFORMATION
  Report Type: 
  Country: None (occurrence: None)
  Receive Date: 20110309
  Receipt Date: 20110309
  Transmission Date: 20110831
  Serious: Yes (Other)
  Sender: FDA-Public Use
  Company Number: None

PATIENT
  Age: 75 Year
  Sex: Female
  Weight: 37.195 kg

DRUGS (10)
  1. SIMVASTATIN [Concomitant]
  2. ALPRAZOLAM [Concomitant]
  3. ACETAMINOPHEN [Concomitant]
  4. SORAFENIB [Suspect]
     Indication: METASTASES TO CENTRAL NERVOUS SYSTEM
     Dosage: 600MG BID
     Dates: start: 20110216, end: 20110303
  5. AMLODIPINE [Concomitant]
  6. CENTRUM SILVER [Concomitant]
  7. ENALAPRIL MALEATE [Concomitant]
  8. FOLIC ACID [Concomitant]
  9. OMEPRAZOLE [Concomitant]
  10. CALTRATE + D [Concomitant]

REACTIONS (6)
  - RASH PAPULAR [None]
  - NODULE [None]
  - PERIORBITAL OEDEMA [None]
  - RASH [None]
  - HYPERBILIRUBINAEMIA [None]
  - STOMATITIS [None]
